FAERS Safety Report 23097328 (Version 4)
Quarter: 2024Q1

REPORT INFORMATION
  Report Type: Report from Study
  Country: GB (occurrence: GB)
  Receive Date: 20231023
  Receipt Date: 20240112
  Transmission Date: 20240410
  Serious: Yes (Other)
  Sender: FDA-Public Use
  Company Number: GB-ABBVIE-5358472

PATIENT
  Age: 68 Year
  Sex: Male

DRUGS (25)
  1. ROPINIROLE [Suspect]
     Active Substance: ROPINIROLE
     Indication: Product used for unknown indication
     Dosage: 16 MILLIGRAM
     Route: 065
     Dates: end: 20230814
  2. ROPINIROLE [Suspect]
     Active Substance: ROPINIROLE
     Dosage: 14 MILLIGRAM (LAST ADMIN DATE: 2023)
     Route: 065
     Dates: start: 20230814, end: 20230814
  3. ROPINIROLE [Suspect]
     Active Substance: ROPINIROLE
     Dosage: 14 MILLIGRAM
     Route: 065
     Dates: start: 20231009
  4. ROPINIROLE [Suspect]
     Active Substance: ROPINIROLE
     Dosage: 12 MILLIGRAM
     Route: 065
     Dates: start: 2023, end: 2023
  5. ROPINIROLE [Suspect]
     Active Substance: ROPINIROLE
     Dosage: 14 MILLIGRAM, QD
     Route: 065
     Dates: start: 20231009
  6. CARBIDOPA\LEVODOPA [Suspect]
     Active Substance: CARBIDOPA\LEVODOPA
     Indication: Parkinson^s disease
     Dosage: MD:6.4ML, CR: 1.1ML, ED: 0.7ML
     Route: 065
     Dates: start: 2023, end: 2023
  7. CARBIDOPA\LEVODOPA [Suspect]
     Active Substance: CARBIDOPA\LEVODOPA
     Dosage: 1.1MLS/HR MORNING DOSE 6.4MLS/HR EXTRA DOSE 0.3MLS 0830 TO 2200HRS
     Route: 065
     Dates: start: 2023, end: 2023
  8. CARBIDOPA\LEVODOPA [Suspect]
     Active Substance: CARBIDOPA\LEVODOPA
     Dosage: MD: 6.3ML CR: 1.0ML ED:0.5ML
     Route: 065
     Dates: end: 2023
  9. CARBIDOPA\LEVODOPA [Suspect]
     Active Substance: CARBIDOPA\LEVODOPA
     Dosage: 20MG/5MG, MD: 6.3ML CR: 1.0ML ED:0.3ML;
     Route: 065
     Dates: start: 2023
  10. CARBIDOPA\LEVODOPA [Suspect]
     Active Substance: CARBIDOPA\LEVODOPA
     Dosage: CR: 1.2MLS/HR
     Route: 065
     Dates: start: 2023, end: 2023
  11. CARBIDOPA\LEVODOPA [Suspect]
     Active Substance: CARBIDOPA\LEVODOPA
     Dosage: MD 6.4MLS CR 1.4MLS ED 0.7MLS
     Route: 065
     Dates: start: 2023
  12. POLYETHYLENE GLYCOL 3350\POTASSIUM CHLORIDE\SODIUM BICARBONATE\SODIUM [Suspect]
     Active Substance: POLYETHYLENE GLYCOL 3350\POTASSIUM CHLORIDE\SODIUM BICARBONATE\SODIUM CHLORIDE
     Indication: Product used for unknown indication
     Dosage: UNK
     Route: 065
  13. CYANOCOBALAMIN [Concomitant]
     Active Substance: CYANOCOBALAMIN
     Indication: Product used for unknown indication
     Dosage: 50 MICROGRAM, QD
     Route: 065
  14. NIACINAMIDE\PYRIDOXINE HYDROCHLORIDE\RIBOFLAVIN\THIAMINE HYDROCHLORIDE [Concomitant]
     Active Substance: NIACINAMIDE\PYRIDOXINE HYDROCHLORIDE\RIBOFLAVIN\THIAMINE HYDROCHLORIDE
     Indication: Product used for unknown indication
     Dosage: UNK, QD
     Route: 065
  15. BENSERAZIDE HYDROCHLORIDE\LEVODOPA [Concomitant]
     Active Substance: BENSERAZIDE HYDROCHLORIDE\LEVODOPA
     Indication: Product used for unknown indication
     Dosage: 12.5/50MG X2FREQUENCY TEXT: OM
     Route: 065
  16. BENSERAZIDE HYDROCHLORIDE\LEVODOPA [Concomitant]
     Active Substance: BENSERAZIDE HYDROCHLORIDE\LEVODOPA
     Indication: Product used for unknown indication
     Dosage: 12.5/50MGS TWO TABLETSOM 2 TAB AT 07:00HRS PLUS EXTRA 1 TAB PRN;
     Route: 065
  17. BENSERAZIDE HYDROCHLORIDE\LEVODOPA [Concomitant]
     Active Substance: BENSERAZIDE HYDROCHLORIDE\LEVODOPA
     Dosage: 125 MILLIGRAM, QD (AT 07:00HRS PLUS EXTRA ONE TABLET AS REQ)
     Route: 065
  18. IBUPROFEN [Concomitant]
     Active Substance: IBUPROFEN
     Indication: Product used for unknown indication
     Dosage: UNK
     Route: 065
  19. AMLODIPINE [Concomitant]
     Active Substance: AMLODIPINE BESYLATE
     Indication: Product used for unknown indication
     Dosage: 5 MILLIGRAM, QD
     Route: 065
  20. LANSOPRAZOLE [Concomitant]
     Active Substance: LANSOPRAZOLE
     Indication: Product used for unknown indication
     Dosage: UNK
     Route: 065
  21. MIRTAZAPINE [Concomitant]
     Active Substance: MIRTAZAPINE
     Indication: Product used for unknown indication
     Dosage: 15 MILLIGRAM, QD
     Route: 065
  22. ACETAMINOPHEN [Concomitant]
     Active Substance: ACETAMINOPHEN
     Indication: Product used for unknown indication
     Dosage: UNK
     Route: 065
  23. CHOLECALCIFEROL [Concomitant]
     Active Substance: CHOLECALCIFEROL
     Indication: Product used for unknown indication
     Dosage: 800 DOSAGE FORM, QD
     Route: 065
  24. TADALAFIL [Concomitant]
     Active Substance: TADALAFIL
     Indication: Product used for unknown indication
     Dosage: UNK
     Route: 065
  25. NAPROXEN [Concomitant]
     Active Substance: NAPROXEN
     Indication: Product used for unknown indication
     Dosage: UNK
     Route: 065

REACTIONS (28)
  - Blood pressure abnormal [Unknown]
  - Mobility decreased [Unknown]
  - Asthenia [Unknown]
  - Parkinson^s disease [Not Recovered/Not Resolved]
  - Heart rate abnormal [Unknown]
  - Fall [Recovered/Resolved]
  - Stoma site discharge [Recovered/Resolved]
  - Localised infection [Recovering/Resolving]
  - Stoma site erythema [Recovered/Resolved]
  - Freezing phenomenon [Not Recovered/Not Resolved]
  - Decreased appetite [Unknown]
  - Nocturia [Not Recovered/Not Resolved]
  - Formication [Unknown]
  - Food craving [Unknown]
  - Skin abrasion [Recovering/Resolving]
  - Tremor [Recovered/Resolved]
  - Bradykinesia [Unknown]
  - Muscle rigidity [Recovered/Resolved]
  - Stoma site infection [Unknown]
  - Balance disorder [Unknown]
  - Apathy [Unknown]
  - Anxiety [Unknown]
  - Oedema peripheral [Recovering/Resolving]
  - Sleep disorder [Unknown]
  - Therapeutic product effect decreased [Unknown]
  - Device issue [Unknown]
  - Unevaluable event [Unknown]
  - Constipation [Unknown]

NARRATIVE: CASE EVENT DATE: 20230101
